FAERS Safety Report 10643278 (Version 1)
Quarter: 2014Q4

REPORT INFORMATION
  Report Type: Spontaneous
  Country: US (occurrence: None)
  Receive Date: 20141121
  Receipt Date: 20141121
  Transmission Date: 20150529
  Serious: Yes (Other)
  Sender: FDA-Public Use
  Company Number: 163-10004-14072874

PATIENT
  Age: 57 Year
  Sex: Female
  Weight: 102.06 kg

DRUGS (1)
  1. OTEZLA [Suspect]
     Active Substance: APREMILAST
     Indication: PSORIATIC ARTHROPATHY
     Dosage: 2 IN 1 D
     Route: 048
     Dates: start: 20140701

REACTIONS (5)
  - Diarrhoea [None]
  - Abdominal discomfort [None]
  - Feeling abnormal [None]
  - Gastrointestinal pain [None]
  - Drug dose omission [None]

NARRATIVE: CASE EVENT DATE: 2014
